FAERS Safety Report 5108176-8 (Version None)
Quarter: 2006Q3

REPORT INFORMATION
  Report Type: 
  Country: None (occurrence: None)
  Receive Date: 20060915
  Receipt Date: 20060901
  Transmission Date: 20061208
  Serious: Yes (Hospitalization, Other)
  Sender: FDA-Public Use
  Company Number: 2006AL002640

PATIENT
  Age: 43 Year
  Sex: Female

DRUGS (4)
  1. IBUPROFEN [Suspect]
  2. INTERFERON [Concomitant]
  3. CELECOXIB [Concomitant]
  4. PARACETAMOL [Concomitant]

REACTIONS (10)
  - ALPHA 1 FOETOPROTEIN INCREASED [None]
  - AUTOIMMUNE HEPATITIS [None]
  - CHOLESTASIS [None]
  - CONTUSION [None]
  - DISEASE RECURRENCE [None]
  - DRUG INTOLERANCE [None]
  - ERYTHEMA [None]
  - HEPATIC NECROSIS [None]
  - MULTIPLE SCLEROSIS [None]
  - TREATMENT NONCOMPLIANCE [None]
